FAERS Safety Report 8589978-2 (Version None)
Quarter: 2012Q3

REPORT INFORMATION
  Report Type: 
  Country: None (occurrence: None)
  Receive Date: 20120813
  Receipt Date: 20120808
  Transmission Date: 20120928
  Serious: No
  Sender: FDA-Public Use
  Company Number: US-BAYER-2012-081321

PATIENT
  Age: 28 Year
  Sex: Female
  Weight: 61.678 kg

DRUGS (7)
  1. BETASERON [Suspect]
     Indication: PRODUCT USED FOR UNKNOWN INDICATION
     Dosage: 0.3 MG, UNK
     Route: 058
     Dates: end: 20120601
  2. RITALIN LA [Concomitant]
     Dosage: 10 MG, UNK
  3. PRILOSEC [Concomitant]
     Dosage: 20 MG, UNK
  4. KEPPRA [Concomitant]
     Dosage: 250 MG, UNK
  5. PROZAC [Concomitant]
     Dosage: 10 MG, UNK
  6. ZYRTEC [Concomitant]
     Dosage: 10 MG, UNK
  7. BETASERON [Suspect]
     Dosage: UNK MG, UNK
     Dates: start: 20120701

REACTIONS (6)
  - MICTURITION URGENCY [None]
  - INJECTION SITE PAIN [None]
  - INFLUENZA LIKE ILLNESS [None]
  - HYPERTONIC BLADDER [None]
  - INJECTION SITE ERYTHEMA [None]
  - INJECTION SITE HAEMATOMA [None]
